FAERS Safety Report 6077114-6 (Version None)
Quarter: 2009Q1

REPORT INFORMATION
  Report Type: 
  Country: None (occurrence: None)
  Receive Date: 20090213
  Receipt Date: 20090212
  Transmission Date: 20090719
  Serious: Yes (Death)
  Sender: FDA-Public Use
  Company Number: PHHY2008CA32786

PATIENT
  Sex: Male

DRUGS (1)
  1. CLOZARIL [Suspect]
     Indication: SCHIZOPHRENIA
     Dosage: 500 MG, QD
     Route: 048
     Dates: start: 20081107, end: 20081219

REACTIONS (3)
  - LOBAR PNEUMONIA [None]
  - LOSS OF CONSCIOUSNESS [None]
  - MALAISE [None]
